FAERS Safety Report 4475589-7 (Version None)
Quarter: 2004Q4

REPORT INFORMATION
  Report Type: 
  Country: None (occurrence: None)
  Receive Date: 20041012
  Receipt Date: 20040928
  Transmission Date: 20050328
  Serious: Yes (Death)
  Sender: FDA-Public Use
  Company Number: 2004070905

PATIENT
  Age: 67 Year
  Sex: Female

DRUGS (7)
  1. ATARAX [Suspect]
     Indication: ILL-DEFINED DISORDER
     Dates: end: 20040323
  2. ATORVASTATIN CALCIUM [Suspect]
     Indication: ILL-DEFINED DISORDER
     Dosage: ORAL
     Route: 048
     Dates: end: 20040323
  3. ALDACTAZINE (ALTIZIDE, SPIRONOLACTONE) [Concomitant]
  4. SULPIRIDE (SULPIRIDE) [Suspect]
     Indication: ILL-DEFINED DISORDER
     Dates: end: 20040323
  5. VALACYCLOVIR HCL [Suspect]
     Indication: ILL-DEFINED DISORDER
     Dosage: ORAL
     Route: 048
     Dates: start: 20040323, end: 20040323
  6. CLOMIPRAMINE HCL [Suspect]
     Indication: ILL-DEFINED DISORDER
     Dosage: ORAL
     Route: 048
     Dates: end: 20040323
  7. LOPRAZOLAM MESILATE (LORPAZOLAM MESILATE) [Suspect]
     Indication: ILL-DEFINED DISORDER
     Dosage: ORAL
     Route: 048
     Dates: end: 20040323

REACTIONS (6)
  - BLOOD CREATININE ABNORMAL [None]
  - BLOOD GLUCOSE ABNORMAL [None]
  - BLOOD POTASSIUM INCREASED [None]
  - HERPES ZOSTER [None]
  - NEUROMYOPATHY [None]
  - VENTRICULAR TACHYCARDIA [None]
